FAERS Safety Report 10662542 (Version 1)
Quarter: 2014Q4

REPORT INFORMATION
  Report Type: Spontaneous
  Country: CA (occurrence: None)
  Receive Date: 20141217
  Receipt Date: 20141217
  Transmission Date: 20150529
  Serious: Yes (Disabling)
  Sender: FDA-Public Use
  Company Number: None

PATIENT
  Age: 29 Year
  Sex: Male
  Weight: 70.31 kg

DRUGS (1)
  1. PRISTIQ EXTENDED RELEASE [Suspect]
     Active Substance: DESVENLAFAXINE SUCCINATE
     Dosage: 1 PILL
     Route: 048

REACTIONS (4)
  - Orgasmic sensation decreased [None]
  - Erectile dysfunction [None]
  - Libido disorder [None]
  - Anorgasmia [None]

NARRATIVE: CASE EVENT DATE: 20131210
